FAERS Safety Report 6270453-5 (Version None)
Quarter: 2009Q3

REPORT INFORMATION
  Report Type: 
  Country: None (occurrence: None)
  Receive Date: 20090716
  Receipt Date: 20090617
  Transmission Date: 20100115
  Serious: Yes (Life-Threatening)
  Sender: FDA-Public Use
  Company Number: NZ-AVENTIS-200916780GDDC

PATIENT
  Age: 57 Year
  Sex: Male

DRUGS (5)
  1. LEFLUNOMIDE [Suspect]
     Dates: start: 20060501
  2. ADALIMUMAB [Suspect]
     Route: 058
  3. OMEPRAZOLE [Concomitant]
  4. PAROXETINE HCL [Concomitant]
  5. PREDNISOLONE [Concomitant]

REACTIONS (1)
  - NEOPLASM MALIGNANT [None]
